FAERS Safety Report 22186520 (Version 1)
Quarter: 2023Q2

REPORT INFORMATION
  Report Type: Spontaneous
  Country: DE (occurrence: DE)
  Receive Date: 20230407
  Receipt Date: 20230407
  Transmission Date: 20230722
  Serious: Yes (Hospitalization)
  Sender: FDA-Public Use
  Company Number: DE-JNJFOC-20211143275

PATIENT
  Age: 4 Decade
  Sex: Male
  Weight: 95 kg

DRUGS (10)
  1. STELARA [Suspect]
     Active Substance: USTEKINUMAB
     Indication: Colitis ulcerative
     Dates: start: 20210722
  2. STELARA [Suspect]
     Active Substance: USTEKINUMAB
     Route: 058
     Dates: start: 20210916
  3. UROFLOXIN [Concomitant]
     Dates: start: 20210916, end: 20211014
  4. PREDNISOLONE [Concomitant]
     Active Substance: PREDNISOLONE
     Indication: Inflammation
  5. PREDNISOLONE [Concomitant]
     Active Substance: PREDNISOLONE
  6. LEVOTHYROXINE SODIUM [Concomitant]
     Active Substance: LEVOTHYROXINE SODIUM
     Dates: start: 20211027
  7. PANTOPRAZOLE [Concomitant]
     Active Substance: PANTOPRAZOLE
     Dates: start: 20211027
  8. ACETAMINOPHEN [Concomitant]
     Active Substance: ACETAMINOPHEN
     Dates: start: 20211027
  9. AZATHIOPRINE [Concomitant]
     Active Substance: AZATHIOPRINE
  10. MERCAPTOPURINE [Concomitant]
     Active Substance: MERCAPTOPURINE

REACTIONS (1)
  - Ileostomy [Recovered/Resolved]

NARRATIVE: CASE EVENT DATE: 20211014
